FAERS Safety Report 5914019-2 (Version None)
Quarter: 2008Q4

REPORT INFORMATION
  Report Type: 
  Country: None (occurrence: None)
  Receive Date: 20081007
  Receipt Date: 20080923
  Transmission Date: 20090506
  Serious: Yes (Death)
  Sender: FDA-Public Use
  Company Number: POMP-1000312

PATIENT
  Age: 40 Year
  Sex: Female
  Weight: 165 kg

DRUGS (1)
  1. MYOZYME [Suspect]
     Indication: GLYCOGEN STORAGE DISEASE TYPE II
     Dosage: 1350 MG, Q2W, INTRAVENOUS
     Route: 042
     Dates: start: 20060314, end: 20080813

REACTIONS (3)
  - ASPIRATION TRACHEAL [None]
  - CARDIO-RESPIRATORY ARREST [None]
  - LOSS OF CONSCIOUSNESS [None]
